FAERS Safety Report 23462292 (Version 3)
Quarter: 2024Q3

REPORT INFORMATION
  Report Type: Spontaneous
  Country: US (occurrence: US)
  Receive Date: 20240131
  Receipt Date: 20240726
  Transmission Date: 20241017
  Serious: Yes (Hospitalization)
  Sender: SANDOZ
  Company Number: US-SANDOZ-SDZ2024US008038

PATIENT
  Sex: Male

DRUGS (2)
  1. AMOXICILLIN [Suspect]
     Active Substance: AMOXICILLIN
     Indication: Pharyngitis streptococcal
     Dosage: 500 MG, BID
     Route: 065
     Dates: start: 20230710
  2. AMOXICILLIN [Suspect]
     Active Substance: AMOXICILLIN
     Dosage: UNK
     Route: 065

REACTIONS (11)
  - Amnesia [Recovering/Resolving]
  - Nail discomfort [Recovering/Resolving]
  - Tooth disorder [Recovering/Resolving]
  - Alopecia [Recovering/Resolving]
  - Hypersensitivity [Unknown]
  - Burns second degree [Unknown]
  - Hypoacusis [Unknown]
  - Dry skin [Unknown]
  - Aphonia [Unknown]
  - Ageusia [Unknown]
  - Visual impairment [Unknown]
